FAERS Safety Report 12476473 (Version 1)
Quarter: 2016Q2

REPORT INFORMATION
  Report Type: Report from Study
  Country: JP (occurrence: JP)
  Receive Date: 20160617
  Receipt Date: 20160617
  Transmission Date: 20160815
  Serious: Yes (Hospitalization)
  Sender: FDA-Public Use
  Company Number: JP-ROCHE-GNE298036

PATIENT
  Age: 78 Year
  Sex: Male
  Weight: 72.08 kg

DRUGS (22)
  1. QVAR [Concomitant]
     Active Substance: BECLOMETHASONE DIPROPIONATE
     Dosage: 400 UG, BID
     Route: 055
     Dates: start: 20090416
  2. PREDONINE [Concomitant]
     Active Substance: PREDNISOLONE\PREDNISOLONE ACETATE\PREDNISOLONE SODIUM SUCCINATE
     Dosage: UNK
     Route: 048
     Dates: start: 20090409, end: 20090416
  3. MEVALOTIN [Concomitant]
     Active Substance: PRAVASTATIN SODIUM
     Indication: PRODUCT USED FOR UNKNOWN INDICATION
     Dosage: 10 MG, QD
     Route: 048
     Dates: start: 20070926
  4. RINDERON V [Concomitant]
     Active Substance: BETAMETHASONE VALERATE
     Indication: PRODUCT USED FOR UNKNOWN INDICATION
     Dosage: 1 MG, QD
     Route: 048
     Dates: start: 20090717, end: 20090717
  5. OMALIZUMAB [Suspect]
     Active Substance: OMALIZUMAB
     Route: 058
     Dates: start: 20091029
  6. MEIACT [Concomitant]
     Active Substance: CEFDITOREN PIVOXIL
     Indication: PHARYNGITIS BACTERIAL
     Dosage: UNK
     Route: 048
     Dates: start: 20091126, end: 20091128
  7. SOLANTAL [Concomitant]
     Active Substance: TIARAMIDE
     Indication: UPPER RESPIRATORY TRACT INFLAMMATION
     Dosage: 300 MG, QD
     Route: 048
     Dates: start: 20091126, end: 20091130
  8. METFORMIN HYDROCHLORIDE. [Concomitant]
     Active Substance: METFORMIN HYDROCHLORIDE
     Indication: PRODUCT USED FOR UNKNOWN INDICATION
     Dosage: UNK
     Route: 065
     Dates: start: 20070926
  9. OMALIZUMAB [Suspect]
     Active Substance: OMALIZUMAB
     Route: 058
     Dates: start: 20091203, end: 20091203
  10. SEREVENT DISKUS [Concomitant]
     Active Substance: SALMETEROL XINAFOATE
     Indication: ASTHMA
     Dosage: 50 UG, BID
     Route: 055
     Dates: start: 20090129
  11. OMALIZUMAB [Suspect]
     Active Substance: OMALIZUMAB
     Route: 058
     Dates: start: 20091001
  12. GASTER [Concomitant]
     Active Substance: FAMOTIDINE
     Indication: GASTROOESOPHAGEAL REFLUX DISEASE
     Dosage: UNK
     Route: 065
     Dates: start: 20070926
  13. OMALIZUMAB [Suspect]
     Active Substance: OMALIZUMAB
     Route: 058
     Dates: start: 20090730
  14. OMALIZUMAB [Suspect]
     Active Substance: OMALIZUMAB
     Indication: ASTHMA
     Route: 058
     Dates: start: 20090709
  15. QVAR [Concomitant]
     Active Substance: BECLOMETHASONE DIPROPIONATE
     Indication: ASTHMA
     Dosage: 200 UG, QID
     Route: 055
     Dates: start: 20090129, end: 20090415
  16. PREDONINE [Concomitant]
     Active Substance: PREDNISOLONE\PREDNISOLONE ACETATE\PREDNISOLONE SODIUM SUCCINATE
     Indication: ASTHMA
     Dosage: 5 MG, QD
     Route: 048
     Dates: start: 20090423, end: 20090430
  17. HERBAL DRUG NOS [Concomitant]
     Indication: PRODUCT USED FOR UNKNOWN INDICATION
     Dosage: UNK
     Route: 065
     Dates: start: 20091203, end: 20091217
  18. OMALIZUMAB [Suspect]
     Active Substance: OMALIZUMAB
     Route: 058
     Dates: start: 20090903
  19. SPIRIVA [Concomitant]
     Active Substance: TIOTROPIUM BROMIDE MONOHYDRATE
     Indication: ASTHMA
     Dosage: 18 UG, UNK
     Route: 055
     Dates: start: 20090129
  20. SOLANTAL [Concomitant]
     Active Substance: TIARAMIDE
     Dosage: 300 MG, QD
     Route: 048
     Dates: start: 20091224, end: 20100117
  21. RINDERON V [Concomitant]
     Active Substance: BETAMETHASONE VALERATE
     Dosage: 0.5 MG, QD
     Route: 048
     Dates: start: 20090717, end: 20090911
  22. NATEGLINIDE. [Concomitant]
     Active Substance: NATEGLINIDE
     Indication: PRODUCT USED FOR UNKNOWN INDICATION
     Dosage: UNK
     Route: 048
     Dates: start: 20070926

REACTIONS (5)
  - Drug reaction with eosinophilia and systemic symptoms [Unknown]
  - Cytomegalovirus infection [Unknown]
  - White blood cell count increased [Unknown]
  - Pruritus [Not Recovered/Not Resolved]
  - Eosinophilia [Unknown]

NARRATIVE: CASE EVENT DATE: 20091015
